FAERS Safety Report 16180008 (Version 2)
Quarter: 2019Q2

REPORT INFORMATION
  Report Type: Spontaneous
  Country: US (occurrence: US)
  Receive Date: 20190410
  Receipt Date: 20190510
  Transmission Date: 20190711
  Serious: Yes (Other)
  Sender: FDA-Public Use
  Company Number: US-AMGEN-USASP2019054253

PATIENT
  Age: 63 Year
  Sex: Male
  Weight: 98 kg

DRUGS (2)
  1. BLINCYTO [Suspect]
     Active Substance: BLINATUMOMAB
     Indication: MINIMAL RESIDUAL DISEASE
     Dosage: 28 MICROGRAM, QD
     Route: 042
  2. BLINCYTO [Suspect]
     Active Substance: BLINATUMOMAB
     Dosage: 9 MICROGRAM, QD
     Route: 042

REACTIONS (1)
  - Intention tremor [Recovered/Resolved]

NARRATIVE: CASE EVENT DATE: 20190314
